FAERS Safety Report 5228078-6 (Version None)
Quarter: 2007Q1

REPORT INFORMATION
  Report Type: 
  Country: None (occurrence: None)
  Receive Date: 20061201
  Receipt Date: 20060928
  Transmission Date: 20070707
  Serious: No
  Sender: FDA-Public Use
  Company Number: US200609007402

PATIENT
  Age: 59 Year
  Sex: Female

DRUGS (5)
  1. CYMBALTA [Suspect]
     Indication: NEUROPATHY
     Dosage: 30 MG
     Dates: start: 20060920
  2. ALTACE [Concomitant]
  3. TOPROL-XL [Concomitant]
  4. HYDRAZIDE (HYDROCHLOROTHIAZIDE) [Concomitant]
  5. METFORMIN HCL [Concomitant]

REACTIONS (5)
  - FATIGUE [None]
  - MALAISE [None]
  - NAUSEA [None]
  - RETCHING [None]
  - VOMITING [None]
